FAERS Safety Report 24416005 (Version 1)
Quarter: 2024Q4

REPORT INFORMATION
  Report Type: Spontaneous
  Country: US (occurrence: None)
  Receive Date: 20241008
  Receipt Date: 20241008
  Transmission Date: 20250114
  Serious: No
  Sender: Public
  Company Number: None

PATIENT
  Age: 81 Year
  Sex: Male
  Weight: 103 kg

DRUGS (2)
  1. BENZONATATE [Suspect]
     Active Substance: BENZONATATE
     Indication: Cough
     Dosage: FREQUENCY : TWICE A DAY;?
     Route: 048
  2. ATROPINE SULFATE [Suspect]
     Active Substance: ATROPINE SULFATE
     Dosage: FREQUENCY : 3 TIMES A DAY;?
     Route: 060

REACTIONS (2)
  - Hallucination, visual [None]
  - Confusional state [None]

NARRATIVE: CASE EVENT DATE: 20240122
